FAERS Safety Report 21033545 (Version 1)
Quarter: 2022Q3

REPORT INFORMATION
  Report Type: Report from Study
  Country: SA (occurrence: SA)
  Receive Date: 20220701
  Receipt Date: 20220701
  Transmission Date: 20221027
  Serious: Yes (Hospitalization)
  Sender: FDA-Public Use
  Company Number: SA-BIOGEN-2022BI01135986

PATIENT
  Sex: Female
  Weight: 12 kg

DRUGS (1)
  1. SPINRAZA [Suspect]
     Active Substance: NUSINERSEN
     Indication: Spinal muscular atrophy
     Dosage: LOADING DOSES (0, 14, 28, 64) THEN MAINTENANCE DOSE EVERY 4 MONTHS
     Route: 050
     Dates: start: 20190411

REACTIONS (1)
  - Scoliosis [Recovered/Resolved]
